FAERS Safety Report 19440745 (Version 2)
Quarter: 2021Q3

REPORT INFORMATION
  Report Type: Spontaneous
  Country: JP (occurrence: JP)
  Receive Date: 20210621
  Receipt Date: 20210711
  Transmission Date: 20211014
  Serious: Yes (Death, Other)
  Sender: FDA-Public Use
  Company Number: JP-JNJFOC-20210626355

PATIENT
  Age: 42 Year
  Sex: Female

DRUGS (3)
  1. OPSUMIT [Suspect]
     Active Substance: MACITENTAN
     Indication: PULMONARY ARTERIAL HYPERTENSION
     Route: 048
     Dates: start: 20170207
  2. EPOPROSTENOL SODIUM. [Suspect]
     Active Substance: EPOPROSTENOL SODIUM
     Indication: PRODUCT USED FOR UNKNOWN INDICATION
     Dosage: EPOPROSTENOL SODIUM:1.593MG
     Route: 042
     Dates: start: 2017
  3. ADCIRCA [Suspect]
     Active Substance: TADALAFIL
     Indication: PRODUCT USED FOR UNKNOWN INDICATION
     Route: 048

REACTIONS (9)
  - Haemorrhagic diathesis [Fatal]
  - Gastric varices [Unknown]
  - Urinary tract infection [Unknown]
  - Portal hypertension [Unknown]
  - Peritonitis bacterial [Fatal]
  - Systemic lupus erythematosus [Fatal]
  - Portopulmonary hypertension [Fatal]
  - Infection susceptibility increased [Fatal]
  - Ascites [Fatal]

NARRATIVE: CASE EVENT DATE: 201705
